FAERS Safety Report 6415481-1 (Version None)
Quarter: 2009Q4

REPORT INFORMATION
  Report Type: 
  Country: None (occurrence: None)
  Receive Date: 20091027
  Receipt Date: 20091020
  Transmission Date: 20100525
  Serious: Yes (Other)
  Sender: FDA-Public Use
  Company Number: US-JNJFOC-20091006774

PATIENT
  Sex: Male
  Weight: 112.49 kg

DRUGS (2)
  1. ITRACONAZOLE [Suspect]
     Indication: TINEA PEDIS
     Route: 048
     Dates: start: 20090921, end: 20091001
  2. UNKNOWN MEDICATION [Concomitant]
     Indication: TINEA PEDIS
     Route: 061

REACTIONS (2)
  - GAIT DISTURBANCE [None]
  - HYPOAESTHESIA [None]
